FAERS Safety Report 23213805 (Version 1)
Quarter: 2023Q4

REPORT INFORMATION
  Report Type: Spontaneous
  Country: US (occurrence: US)
  Receive Date: 20231121
  Receipt Date: 20231121
  Transmission Date: 20240109
  Serious: No
  Sender: FDA-Public Use
  Company Number: US-ABBVIE-5505703

PATIENT

DRUGS (1)
  1. RESTASIS [Suspect]
     Active Substance: CYCLOSPORINE
     Indication: Product used for unknown indication
     Dosage: 0.5MG/ML ; 0.05% 5.5 ML
     Route: 047
     Dates: start: 202311

REACTIONS (2)
  - Product container issue [Unknown]
  - Accidental exposure to product [Unknown]
